FAERS Safety Report 6234081-X (Version None)
Quarter: 2009Q2

REPORT INFORMATION
  Report Type: 
  Country: None (occurrence: None)
  Receive Date: 20090612
  Receipt Date: 20090601
  Transmission Date: 20091009
  Serious: Yes (Other)
  Sender: FDA-Public Use
  Company Number: CERZ-1000671

PATIENT
  Sex: Male
  Weight: 3 kg

DRUGS (1)
  1. CEREZYME [Suspect]
     Indication: DRUG EXPOSURE DURING PREGNANCY
     Dosage: INTRA-UTERINE

REACTIONS (5)
  - CAESAREAN SECTION [None]
  - EAR DISORDER [None]
  - MATERNAL DRUGS AFFECTING FOETUS [None]
  - RESPIRATORY DISTRESS [None]
  - TALIPES [None]
